FAERS Safety Report 7026603-6 (Version None)
Quarter: 2010Q4

REPORT INFORMATION
  Report Type: 
  Country: None (occurrence: None)
  Receive Date: 20101004
  Receipt Date: 20100921
  Transmission Date: 20110411
  Serious: Yes (Life-Threatening, Hospitalization)
  Sender: FDA-Public Use
  Company Number: IT-NOVOPROD-312650

PATIENT
  Sex: Female

DRUGS (3)
  1. NOVONORM [Suspect]
     Indication: DIABETES MELLITUS
     Dosage: UNKNOWN
     Route: 048
     Dates: start: 20100728, end: 20100730
  2. BYETTA [Concomitant]
     Dosage: 10 UG, UNK
     Route: 058
  3. SOLOSA [Concomitant]
     Dosage: 2 MG, UNK

REACTIONS (3)
  - DYSPNOEA [None]
  - OROPHARYNGEAL PAIN [None]
  - PHARYNGEAL OEDEMA [None]
